FAERS Safety Report 13921288 (Version 1)
Quarter: 2017Q3

REPORT INFORMATION
  Report Type: Spontaneous
  Country: BR (occurrence: BR)
  Receive Date: 20170830
  Receipt Date: 20170830
  Transmission Date: 20171127
  Serious: Yes (Other)
  Sender: FDA-Public Use
  Company Number: BR-PFIZER INC-2017368758

PATIENT
  Age: 52 Year
  Sex: Female

DRUGS (4)
  1. LYRICA [Concomitant]
     Active Substance: PREGABALIN
     Dosage: 75MG, 2 TABLETS A DAY
  2. ZOLOFT [Concomitant]
     Active Substance: SERTRALINE HYDROCHLORIDE
     Dosage: UNK, IN THE MORNING
  3. CHAMPIX [Suspect]
     Active Substance: VARENICLINE TARTRATE
     Dosage: UNK
  4. DEPURA [Concomitant]
     Active Substance: CHOLECALCIFEROL
     Dosage: 3 DROPS

REACTIONS (3)
  - Polyneuropathy [Unknown]
  - Paraesthesia [Unknown]
  - Pain in extremity [Unknown]
